FAERS Safety Report 18921696 (Version 1)
Quarter: 2021Q1

REPORT INFORMATION
  Report Type: Spontaneous
  Country: GB (occurrence: GB)
  Receive Date: 20210219
  Receipt Date: 20210219
  Transmission Date: 20210420
  Serious: Yes (Disabling, Other)
  Sender: FDA-Public Use
  Company Number: None

PATIENT
  Age: 40 Year
  Sex: Male
  Weight: 75 kg

DRUGS (2)
  1. CIPROFLOXACIN. [Suspect]
     Active Substance: CIPROFLOXACIN
     Indication: PROSTATITIS
     Dates: start: 20201001, end: 20201028
  2. OFLOXACIN. [Suspect]
     Active Substance: OFLOXACIN

REACTIONS (8)
  - Renal impairment [None]
  - Feeling abnormal [None]
  - Neuropathy peripheral [None]
  - Pain [None]
  - Musculoskeletal stiffness [None]
  - Hepatic function abnormal [None]
  - Tendon pain [None]
  - Arthralgia [None]

NARRATIVE: CASE EVENT DATE: 20201110
